FAERS Safety Report 9940442 (Version 3)
Quarter: 2014Q2

REPORT INFORMATION
  Report Type: Spontaneous
  Country: JP (occurrence: JP)
  Receive Date: 20140303
  Receipt Date: 20140625
  Transmission Date: 20141212
  Serious: Yes (Other)
  Sender: FDA-Public Use
  Company Number: JP-PFIZER INC-2014034685

PATIENT
  Age: 60 Year
  Sex: Male

DRUGS (4)
  1. ZYVOX [Suspect]
     Indication: SEPSIS
     Dosage: 1200 MG, 1X/DAY
     Route: 042
     Dates: start: 20140129, end: 20140211
  2. FINIBAX [Suspect]
     Indication: SEPSIS
     Dosage: 1.5 G, 1X/DAY
     Route: 041
     Dates: start: 20140124, end: 20140208
  3. PHENOBAL [Concomitant]
     Indication: EPILEPSY
  4. CLONAZEPAM [Concomitant]
     Indication: EPILEPSY

REACTIONS (1)
  - Epilepsy [Recovered/Resolved]
